FAERS Safety Report 8023316-9 (Version None)
Quarter: 2012Q1

REPORT INFORMATION
  Report Type: 
  Country: None (occurrence: None)
  Receive Date: 20120104
  Receipt Date: 20120103
  Transmission Date: 20120608
  Serious: Yes (Hospitalization, Other)
  Sender: FDA-Public Use
  Company Number: US-ROCHE-512811

PATIENT
  Sex: Male
  Weight: 77.1 kg

DRUGS (2)
  1. ACCUTANE [Suspect]
     Indication: ACNE
     Route: 048
     Dates: start: 19960701, end: 19960901
  2. ACCUTANE [Suspect]
     Route: 048

REACTIONS (22)
  - COLITIS [None]
  - ARTHRITIS [None]
  - BLOOD CHOLESTEROL INCREASED [None]
  - PYLORIC STENOSIS [None]
  - ARTHRALGIA [None]
  - OSTEOPENIA [None]
  - ANXIETY [None]
  - INFLAMMATORY BOWEL DISEASE [None]
  - VOMITING [None]
  - FATIGUE [None]
  - GASTROOESOPHAGEAL REFLUX DISEASE [None]
  - SACROILIITIS [None]
  - DRY SKIN [None]
  - COLITIS ULCERATIVE [None]
  - BACK PAIN [None]
  - BONE DISORDER [None]
  - MUSCULOSKELETAL DISORDER [None]
  - STRESS [None]
  - LIP DRY [None]
  - CROHN'S DISEASE [None]
  - DEPRESSION [None]
  - SPONDYLITIS [None]
